FAERS Safety Report 9245135 (Version 1)
Quarter: 2013Q2

REPORT INFORMATION
  Report Type: Spontaneous
  Country: US (occurrence: US)
  Receive Date: 20130422
  Receipt Date: 20130422
  Transmission Date: 20140414
  Serious: Yes (Hospitalization, Other)
  Sender: FDA-Public Use
  Company Number: US-PFIZER INC-2013121401

PATIENT
  Age: 81 Year
  Sex: Female
  Weight: 102.4 kg

DRUGS (3)
  1. REVATIO [Suspect]
     Dosage: 20 MG, 2X/DAY
     Route: 048
  2. LASIX [Concomitant]
     Dosage: UNK
  3. COREG [Concomitant]
     Dosage: UNK

REACTIONS (3)
  - Cardiac failure congestive [Unknown]
  - Cataract [Unknown]
  - Body height decreased [Unknown]
